FAERS Safety Report 8534148-7 (Version None)
Quarter: 2012Q3

REPORT INFORMATION
  Report Type: 
  Country: None (occurrence: None)
  Receive Date: 20120724
  Receipt Date: 20120709
  Transmission Date: 20120928
  Serious: Yes (Death)
  Sender: FDA-Public Use
  Company Number: FR-ARROW-2012-12267

PATIENT
  Age: 53 Year
  Sex: Female

DRUGS (2)
  1. PREDNISONE TAB [Suspect]
     Indication: GASTROINTESTINAL DISORDER
     Dosage: SEVEN CYCLES
     Route: 065
  2. AZATHIOPRINE [Suspect]
     Indication: GASTROINTESTINAL DISORDER
     Dosage: UNK
     Route: 065

REACTIONS (4)
  - T-CELL LYMPHOMA [None]
  - JEJUNAL PERFORATION [None]
  - LYMPHOMA [None]
  - METASTASES TO CENTRAL NERVOUS SYSTEM [None]
